FAERS Safety Report 10580828 (Version 1)
Quarter: 2014Q4

REPORT INFORMATION
  Report Type: Spontaneous
  Country: US (occurrence: None)
  Receive Date: 20141112
  Receipt Date: 20141112
  Transmission Date: 20150529
  Serious: Yes (Other)
  Sender: FDA-Public Use
  Company Number: None

PATIENT
  Age: 80 Year
  Sex: Female
  Weight: 48.99 kg

DRUGS (2)
  1. MULTIVITAMINS +/MINERALS [Concomitant]
  2. ACTONEL [Suspect]
     Active Substance: RISEDRONATE SODIUM
     Indication: OSTEOPENIA
     Route: 048
     Dates: start: 20140809, end: 20140912

REACTIONS (7)
  - Neck pain [None]
  - Pain in extremity [None]
  - Pruritus [None]
  - Musculoskeletal pain [None]
  - Pain [None]
  - Rash [None]
  - Arthralgia [None]

NARRATIVE: CASE EVENT DATE: 201208
